FAERS Safety Report 8365494-8 (Version None)
Quarter: 2012Q2

REPORT INFORMATION
  Report Type: 
  Country: None (occurrence: None)
  Receive Date: 20120516
  Receipt Date: 20120509
  Transmission Date: 20120825
  Serious: Yes (Hospitalization)
  Sender: FDA-Public Use
  Company Number: US-BAYER-2011-070810

PATIENT
  Age: 25 Year
  Sex: Female
  Weight: 68.934 kg

DRUGS (5)
  1. VICODIN [Concomitant]
     Dosage: UNK
     Route: 048
  2. YAZ [Suspect]
     Indication: CONTRACEPTION
     Dosage: UNK
     Dates: start: 20090802, end: 20090924
  3. PHENERGAN [Concomitant]
     Dosage: UNK
     Route: 048
  4. IBUPROFEN [Concomitant]
     Dosage: UNK
     Route: 048
  5. CIPROFLOXACIN [Concomitant]
     Dosage: UNK
     Route: 048

REACTIONS (7)
  - ABDOMINAL PAIN [None]
  - EMOTIONAL DISTRESS [None]
  - CHOLECYSTITIS CHRONIC [None]
  - ABDOMINAL DISCOMFORT [None]
  - ANXIETY [None]
  - GASTRIC DISORDER [None]
  - ABDOMINAL PAIN UPPER [None]
